FAERS Safety Report 7112449-7 (Version None)
Quarter: 2010Q4

REPORT INFORMATION
  Report Type: 
  Country: None (occurrence: None)
  Receive Date: 20101119
  Receipt Date: 20101111
  Transmission Date: 20110411
  Serious: Yes (Other)
  Sender: FDA-Public Use
  Company Number: US-PFIZER INC-2010149443

PATIENT
  Age: 37 Year
  Sex: Male
  Weight: 95.254 kg

DRUGS (3)
  1. EFFEXOR [Suspect]
     Indication: BIPOLAR I DISORDER
     Dosage: 150 MG, UNK
     Dates: end: 20100101
  2. EFFEXOR XR [Suspect]
     Indication: BIPOLAR I DISORDER
     Dosage: 150 MG, UNK
     Dates: start: 20100101, end: 20100801
  3. SEROQUEL [Suspect]
     Indication: BIPOLAR DISORDER
     Dosage: UNK
     Dates: end: 20101001

REACTIONS (17)
  - ABNORMAL DREAMS [None]
  - CRYING [None]
  - DIZZINESS [None]
  - EATING DISORDER [None]
  - FATIGUE [None]
  - FEELING ABNORMAL [None]
  - HYPERTENSION [None]
  - INSOMNIA [None]
  - LIVER INJURY [None]
  - MANIA [None]
  - MEMORY IMPAIRMENT [None]
  - PARANOIA [None]
  - RENAL INJURY [None]
  - RENAL PAIN [None]
  - SUICIDAL IDEATION [None]
  - TACHYCARDIA [None]
  - THIRST [None]
